FAERS Safety Report 14251462 (Version 2)
Quarter: 2017Q4

REPORT INFORMATION
  Report Type: Report from Study
  Country: AR (occurrence: AR)
  Receive Date: 20171205
  Receipt Date: 20171219
  Transmission Date: 20180321
  Serious: Yes (Hospitalization)
  Sender: FDA-Public Use
  Company Number: PHHY2017AR178200

PATIENT
  Age: 67 Year
  Sex: Male

DRUGS (1)
  1. EXFORGE [Suspect]
     Active Substance: AMLODIPINE BESYLATE\VALSARTAN
     Indication: TENSION
     Dosage: 1 DF (AMLODIPINE 5/VALSARTAN 160, UNIT NOT PROVIDED), QD
     Route: 065

REACTIONS (4)
  - Renal haematoma [Recovering/Resolving]
  - Pelvic fracture [Recovering/Resolving]
  - Hip fracture [Recovering/Resolving]
  - Road traffic accident [Recovering/Resolving]

NARRATIVE: CASE EVENT DATE: 20171103
